FAERS Safety Report 24083356 (Version 1)
Quarter: 2024Q3

REPORT INFORMATION
  Report Type: Spontaneous
  Country: US (occurrence: US)
  Receive Date: 20240712
  Receipt Date: 20240712
  Transmission Date: 20241017
  Serious: Yes (Hospitalization)
  Sender: MYLAN
  Company Number: US-MYLANLABS-2024M1063760

PATIENT
  Age: 52 Day

DRUGS (14)
  1. LEVETIRACETAM [Suspect]
     Active Substance: LEVETIRACETAM
     Indication: Status epilepticus
     Dosage: UNK, BID, 15?MG/KG/DOSE
     Route: 065
  2. LEVETIRACETAM [Suspect]
     Active Substance: LEVETIRACETAM
     Indication: Status epilepticus
     Dosage: UNK, BID, 30?MG/KG/DOSE
     Route: 048
  3. LORAZEPAM [Suspect]
     Active Substance: LORAZEPAM
     Indication: Status epilepticus
     Dosage: 0.1 MILLIGRAM/KILOGRAM
     Route: 042
  4. PHENOBARBITAL [Concomitant]
     Active Substance: PHENOBARBITAL
     Indication: Status epilepticus
     Dosage: 20 MILLIGRAM/KILOGRAM
     Route: 042
  5. PHENOBARBITAL [Concomitant]
     Active Substance: PHENOBARBITAL
     Dosage: 10 MILLIGRAM/KILOGRAM
     Route: 042
  6. FOSPHENYTOIN [Concomitant]
     Active Substance: FOSPHENYTOIN
     Indication: Status epilepticus
     Dosage: 20-MG PHENYTOIN EQUIVALENTS (PES)/KG
     Route: 042
  7. FOSPHENYTOIN [Concomitant]
     Active Substance: FOSPHENYTOIN
     Dosage: 10-MG PES/KG
     Route: 042
  8. MIDAZOLAM [Concomitant]
     Active Substance: MIDAZOLAM
     Indication: Status epilepticus
     Dosage: 0.1 MILLIGRAM/KILOGRAM, QH
     Route: 042
  9. MIDAZOLAM [Concomitant]
     Active Substance: MIDAZOLAM
     Dosage: 0.5 MILLIGRAM/KILOGRAM, QH, OVER 12HOURS
     Route: 042
  10. PENTOBARBITAL [Concomitant]
     Active Substance: PENTOBARBITAL
     Indication: Status epilepticus
     Dosage: 1 MILLIGRAM/KILOGRAM, QH, INFUSION
     Route: 065
  11. PENTOBARBITAL [Concomitant]
     Active Substance: PENTOBARBITAL
     Dosage: 2 MILLIGRAM/KILOGRAM, QH, INFUSION
     Route: 065
  12. PENTOBARBITAL [Concomitant]
     Active Substance: PENTOBARBITAL
     Dosage: 10 MILLIGRAM/KILOGRAM, BID, ON HOSPITAL DAYS?4 THROUGH 7
     Route: 042
  13. KETAMINE [Concomitant]
     Active Substance: KETAMINE
     Indication: Status epilepticus
     Dosage: 1-MG/KG BOLUS WAS GIVEN OVER 2 TO 3 MINUTES, FOLLOWED BY IV KETAMINE CONTINUOUS INFUSION AT 1 MG/KG/
     Route: 042
  14. TOPIRAMATE [Concomitant]
     Active Substance: TOPIRAMATE
     Indication: Status epilepticus
     Dosage: UNK UNK, BID, 2?MG/KG/DOSE
     Route: 048

REACTIONS (1)
  - Drug ineffective [Unknown]
